FAERS Safety Report 7791815-0 (Version None)
Quarter: 2011Q4

REPORT INFORMATION
  Report Type: 
  Country: None (occurrence: None)
  Receive Date: 20111003
  Receipt Date: 20110927
  Transmission Date: 20120403
  Serious: Yes (Death, Other)
  Sender: FDA-Public Use
  Company Number: US-PFIZER INC-2010018210

PATIENT
  Sex: Male
  Weight: 58.957 kg

DRUGS (3)
  1. WELLBUTRIN XL [Concomitant]
  2. MINOCYCLINE [Concomitant]
  3. CHANTIX [Suspect]
     Indication: SMOKING CESSATION THERAPY
     Dosage: 1 MG, UNK
     Route: 048
     Dates: start: 20070118, end: 20070828

REACTIONS (1)
  - COMPLETED SUICIDE [None]
